FAERS Safety Report 16745692 (Version 2)
Quarter: 2020Q4

REPORT INFORMATION
  Report Type: Spontaneous
  Country: CH (occurrence: CH)
  Receive Date: 20190827
  Receipt Date: 20201202
  Transmission Date: 20210113
  Serious: Yes (Hospitalization)
  Sender: FDA-Public Use
  Company Number: CH-ASTRAZENECA-2019SF19024

PATIENT
  Age: 69 Year
  Sex: Male

DRUGS (21)
  1. TOREM [Concomitant]
     Active Substance: TORSEMIDE
     Dates: start: 20190718
  2. REQUIP [Concomitant]
     Active Substance: ROPINIROLE HYDROCHLORIDE
     Dosage: (0.5) DAILY
  3. ZOLDORM [Concomitant]
     Active Substance: ZOLPIDEM TARTRATE
  4. CLOPIDOGREL [Concomitant]
     Active Substance: CLOPIDOGREL BISULFATE
     Route: 048
  5. TOREM [Concomitant]
     Active Substance: TORSEMIDE
     Dates: start: 201803, end: 201907
  6. LAXOBERON [Concomitant]
     Active Substance: SODIUM PICOSULFATE
     Dosage: AS NECESSARY
  7. CIALIS [Suspect]
     Active Substance: TADALAFIL
     Dosage: 10 MG IN TOTAL
     Route: 048
     Dates: start: 20190620, end: 201907
  8. CIALIS [Suspect]
     Active Substance: TADALAFIL
     Dosage: 30 MILLIGRAM, ONCE
     Route: 048
     Dates: start: 20190620, end: 201907
  9. ATORVASTATIN [Concomitant]
     Active Substance: ATORVASTATIN
     Route: 048
  10. ANXIOLIT [Concomitant]
     Active Substance: OXAZEPAM
     Dosage: AS NECESSARY
  11. NEXIUM [Suspect]
     Active Substance: ESOMEPRAZOLE MAGNESIUM
     Route: 048
  12. TOREM [Concomitant]
     Active Substance: TORSEMIDE
     Dosage: 50 MG AS NECESSARY
     Dates: start: 2018, end: 201803
  13. PRADIF T [Concomitant]
     Active Substance: TAMSULOSIN HYDROCHLORIDE
  14. GABAPENTIN. [Suspect]
     Active Substance: GABAPENTIN
     Dosage: 300 MILLIGRAM, 3/DAY
     Route: 048
     Dates: start: 20190111, end: 20190807
  15. GABAPENTIN. [Suspect]
     Active Substance: GABAPENTIN
     Dosage: UNK
     Route: 048
     Dates: start: 20190807, end: 20190814
  16. DAFALGAN [Concomitant]
     Active Substance: ACETAMINOPHEN
  17. ARANESP [Suspect]
     Active Substance: DARBEPOETIN ALFA
     Route: 058
  18. TOREM [Concomitant]
     Active Substance: TORSEMIDE
     Dates: start: 201801, end: 2018
  19. TIZANIDINE. [Concomitant]
     Active Substance: TIZANIDINE
     Dates: start: 201906, end: 201906
  20. GABAPENTIN. [Suspect]
     Active Substance: GABAPENTIN
     Dosage: 300 MILLIGRAM, 2/DAY
     Route: 048
     Dates: end: 20190110
  21. TRAJENTA [Concomitant]
     Active Substance: LINAGLIPTIN
     Dosage: 5.0MG UNKNOWN

REACTIONS (5)
  - Fluid retention [Not Recovered/Not Resolved]
  - Hypervolaemia [Recovered/Resolved]
  - Dyspnoea [Recovered/Resolved]
  - Generalised oedema [Unknown]
  - Oedema peripheral [Not Recovered/Not Resolved]

NARRATIVE: CASE EVENT DATE: 201907
